FAERS Safety Report 8121742-0 (Version None)
Quarter: 2012Q1

REPORT INFORMATION
  Report Type: 
  Country: None (occurrence: None)
  Receive Date: 20120206
  Receipt Date: 20120120
  Transmission Date: 20120608
  Serious: Yes (Other)
  Sender: FDA-Public Use
  Company Number: FK201200189

PATIENT
  Age: 61 Year
  Sex: Male

DRUGS (2)
  1. LIDOCAINE (LIDOCAINE) (LIDOCAINE) LIDOCAINE (LIDOCAINE) (LIDOCAINE) [Concomitant]
  2. DEXAMETHASONE SODIUM PHOSPHATE [Suspect]
     Indication: PRODUCT USED FOR UNKNOWN INDICATION
     Dosage: 1 ML, ONCE, INTRA-ARTICULAR
     Route: 014
     Dates: start: 20120117, end: 20120117

REACTIONS (11)
  - VENTRICULAR EXTRASYSTOLES [None]
  - TINNITUS [None]
  - VERTIGO [None]
  - AMNESIA [None]
  - BLINDNESS TRANSIENT [None]
  - VASOSPASM [None]
  - FLUSHING [None]
  - PRODUCT QUALITY ISSUE [None]
  - PRODUCT CONTAMINATION [None]
  - HEADACHE [None]
  - HEART RATE IRREGULAR [None]
